FAERS Safety Report 5721060-1 (Version None)
Quarter: 2008Q2

REPORT INFORMATION
  Report Type: 
  Country: None (occurrence: None)
  Receive Date: 20080423
  Receipt Date: 20071031
  Transmission Date: 20081010
  Serious: Yes (Hospitalization)
  Sender: FDA-Public Use
  Company Number: 251199

PATIENT
  Age: 54 Year
  Sex: Female
  Weight: 43.6 kg

DRUGS (6)
  1. AVASTIN [Suspect]
     Indication: DRUG USE FOR UNKNOWN INDICATION
     Dosage: Q3W
  2. TARCEVA [Suspect]
     Indication: NON-SMALL CELL LUNG CANCER
     Dosage: 150 MG,QD,ORAL
     Route: 048
     Dates: start: 20060715
  3. CARBOPLATIN [Suspect]
     Indication: DRUG USE FOR UNKNOWN INDICATION
     Dosage: Q3W
  4. DOCETAXEL [Suspect]
     Indication: DRUG USE FOR UNKNOWN INDICATION
     Dosage: Q3W
  5. LEVOTHYROXINE SODIUM [Concomitant]
  6. METOPROLOL TARTRATE [Concomitant]

REACTIONS (1)
  - DIARRHOEA [None]
